FAERS Safety Report 19609975 (Version 1)
Quarter: 2021Q3

REPORT INFORMATION
  Report Type: Spontaneous
  Country: US (occurrence: US)
  Receive Date: 20210726
  Receipt Date: 20210726
  Transmission Date: 20211014
  Serious: No
  Sender: FDA-Public Use
  Company Number: US-ORGANON-O2107USA001586

PATIENT
  Age: 67 Year
  Sex: Female

DRUGS (1)
  1. SINGULAIR [Suspect]
     Active Substance: MONTELUKAST SODIUM
     Indication: RHINORRHOEA
     Dosage: 10 MILLIGRAM, ONCE DAILY AT NIGHT
     Route: 048
     Dates: start: 20210714

REACTIONS (4)
  - Cough [Unknown]
  - Dry throat [Unknown]
  - Laryngitis [Unknown]
  - Throat irritation [Unknown]

NARRATIVE: CASE EVENT DATE: 202107
